FAERS Safety Report 10286153 (Version 1)
Quarter: 2014Q3

REPORT INFORMATION
  Report Type: Spontaneous
  Country: US (occurrence: None)
  Receive Date: 20140707
  Receipt Date: 20140707
  Transmission Date: 20150326
  Serious: No
  Sender: FDA-Public Use
  Company Number: None

PATIENT
  Sex: Male

DRUGS (3)
  1. ATIVAN [Suspect]
     Active Substance: LORAZEPAM
     Indication: AUTISM
     Route: 048
  2. ATIVAN [Suspect]
     Active Substance: LORAZEPAM
     Indication: MENTAL RETARDATION
     Route: 048
  3. ATIVAN [Suspect]
     Active Substance: LORAZEPAM
     Indication: OBSESSIVE-COMPULSIVE DISORDER
     Route: 048

REACTIONS (5)
  - Drug ineffective [None]
  - Product substitution issue [None]
  - Aggression [None]
  - Agitation [None]
  - Psychiatric decompensation [None]
